FAERS Safety Report 9285365 (Version 2)
Quarter: 2013Q2

REPORT INFORMATION
  Report Type: Spontaneous
  Country: US (occurrence: US)
  Receive Date: 20130513
  Receipt Date: 20130517
  Transmission Date: 20140414
  Serious: Yes (Death, Hospitalization)
  Sender: FDA-Public Use
  Company Number: US-FRI-1000044988

PATIENT
  Age: 66 Year
  Sex: Male

DRUGS (12)
  1. DALIRESP [Suspect]
     Indication: CHRONIC OBSTRUCTIVE PULMONARY DISEASE
     Dosage: 500 MCG
     Route: 048
     Dates: start: 201111, end: 2013
  2. TOPROL [Concomitant]
     Indication: HYPERTENSION
     Dosage: 25 MG
     Route: 048
     Dates: end: 2013
  3. PRILOSEC [Concomitant]
     Indication: GASTROOESOPHAGEAL REFLUX DISEASE
     Dosage: 20 MG
     Route: 048
     Dates: end: 2013
  4. CYMBALTA [Concomitant]
     Indication: DEPRESSION
     Route: 048
     Dates: end: 2013
  5. COMBIVENT [Concomitant]
     Indication: CHRONIC OBSTRUCTIVE PULMONARY DISEASE
     Dates: end: 2013
  6. TRAMADOL [Concomitant]
     Dates: end: 2013
  7. IMITREX [Concomitant]
     Dates: end: 2013
  8. SINGULAIR [Concomitant]
     Indication: CHRONIC OBSTRUCTIVE PULMONARY DISEASE
     Dates: end: 2013
  9. LASIX [Concomitant]
     Dates: end: 2013
  10. LYRICA [Concomitant]
     Dates: end: 2013
  11. SYMBICORT [Concomitant]
     Indication: CHRONIC OBSTRUCTIVE PULMONARY DISEASE
     Dates: end: 2013
  12. AVODART [Concomitant]
     Indication: PROSTATOMEGALY
     Dates: end: 2013

REACTIONS (1)
  - Clostridium difficile infection [Fatal]
